FAERS Safety Report 15265227 (Version 2)
Quarter: 2018Q4

REPORT INFORMATION
  Report Type: Spontaneous
  Country: US (occurrence: US)
  Receive Date: 20180810
  Receipt Date: 20181015
  Transmission Date: 20190204
  Serious: Yes (Hospitalization, Other)
  Sender: FDA-Public Use
  Company Number: US-MYLANLABS-2018M1060464

PATIENT
  Sex: Female
  Weight: 45 kg

DRUGS (2)
  1. FENTANYL. [Suspect]
     Active Substance: FENTANYL
     Indication: SCAR
  2. FENTANYL. [Suspect]
     Active Substance: FENTANYL
     Indication: BACK PAIN
     Dosage: UNK
     Route: 062

REACTIONS (13)
  - Lip swelling [Unknown]
  - Eye swelling [Recovering/Resolving]
  - Swollen tongue [Recovering/Resolving]
  - Dysphagia [Unknown]
  - Arrhythmia [Unknown]
  - Hyperhidrosis [Unknown]
  - Neuropathy peripheral [Unknown]
  - Wheezing [Unknown]
  - Hair disorder [Unknown]
  - Skin warm [Recovering/Resolving]
  - Swelling face [Recovering/Resolving]
  - Tongue discomfort [Unknown]
  - Dyspepsia [Unknown]
